FAERS Safety Report 4543886-2 (Version None)
Quarter: 2005Q1

REPORT INFORMATION
  Report Type: 
  Country: None (occurrence: None)
  Receive Date: 20050103
  Receipt Date: 20041125
  Transmission Date: 20050727
  Serious: Yes (Disabling)
  Sender: FDA-Public Use
  Company Number: GXKR2004IN00444

PATIENT
  Age: 20 Year
  Sex: Female
  Weight: 41 kg

DRUGS (2)
  1. RIMSTAR(CODE NOT BROKEN) TABLET [Suspect]
     Dosage: 3 UNK, BID, ORAL
     Route: 048
     Dates: start: 20040730, end: 20040802
  2. RIMSTAR(CODE NOT BROKEN) TABLET [Suspect]
     Dosage: 3 UNK, BID, ORAL
     Route: 048
     Dates: start: 20040730, end: 20040802

REACTIONS (1)
  - VOMITING [None]
